FAERS Safety Report 11216283 (Version 4)
Quarter: 2015Q3

REPORT INFORMATION
  Report Type: Spontaneous
  Country: US (occurrence: US)
  Receive Date: 20150624
  Receipt Date: 20150924
  Transmission Date: 20151125
  Serious: Yes (Death, Hospitalization)
  Sender: FDA-Public Use
  Company Number: US-JNJFOC-20150612500

PATIENT
  Age: 85 Year
  Sex: Female

DRUGS (1)
  1. XARELTO [Suspect]
     Active Substance: RIVAROXABAN
     Indication: DEEP VEIN THROMBOSIS
     Route: 048
     Dates: start: 201101, end: 201103

REACTIONS (5)
  - Fall [Fatal]
  - Cerebral haemorrhage [Fatal]
  - Cerebrovascular accident [Fatal]
  - Coagulopathy [Unknown]
  - Dizziness [Fatal]

NARRATIVE: CASE EVENT DATE: 201103
